FAERS Safety Report 10045371 (Version 1)
Quarter: 2014Q1

REPORT INFORMATION
  Report Type: Spontaneous
  Country: US (occurrence: US)
  Receive Date: 20140328
  Receipt Date: 20140328
  Transmission Date: 20141002
  Serious: Yes (Other)
  Sender: FDA-Public Use
  Company Number: US-PFIZER INC-2014087886

PATIENT
  Sex: Male

DRUGS (4)
  1. ALPRAZOLAM [Suspect]
     Dosage: 0.75 MG, UNK
  2. ALPRAZOLAM [Suspect]
     Dosage: 3 MG, UNK
  3. ALPRAZOLAM [Suspect]
     Dosage: 0.25 MG, UNK
  4. CELEXA [Suspect]
     Dosage: UNK

REACTIONS (9)
  - Depression [Unknown]
  - Abdominal distension [Unknown]
  - Panic attack [Unknown]
  - Asthenia [Unknown]
  - Impaired driving ability [Unknown]
  - Fatigue [Unknown]
  - Activities of daily living impaired [Unknown]
  - Mood altered [Unknown]
  - Drug ineffective [Unknown]
